FAERS Safety Report 16896387 (Version 2)
Quarter: 2019Q4

REPORT INFORMATION
  Report Type: Spontaneous
  Country: US (occurrence: US)
  Receive Date: 20191008
  Receipt Date: 20191213
  Transmission Date: 20200122
  Serious: No
  Sender: FDA-Public Use
  Company Number: US-JNJFOC-20191008467

PATIENT
  Sex: Male
  Weight: 74 kg

DRUGS (2)
  1. FINASTERIDE. [Concomitant]
     Active Substance: FINASTERIDE
     Indication: PROSTATOMEGALY
  2. ZYTIGA [Suspect]
     Active Substance: ABIRATERONE ACETATE
     Indication: PRODUCT USED FOR UNKNOWN INDICATION
     Route: 048
     Dates: start: 20190715

REACTIONS (4)
  - Off label use [Unknown]
  - Insomnia [Unknown]
  - Prostatic specific antigen increased [Not Recovered/Not Resolved]
  - Incorrect dose administered [Unknown]
